FAERS Safety Report 8991446 (Version 1)
Quarter: 2012Q4

REPORT INFORMATION
  Report Type: Report from Study
  Country: CA (occurrence: CA)
  Receive Date: 20121231
  Receipt Date: 20121231
  Transmission Date: 20130627
  Serious: Yes (Hospitalization, Other)
  Sender: FDA-Public Use
  Company Number: CA-ROCHE-1174118

PATIENT
  Sex: Female
  Weight: 43.05 kg

DRUGS (5)
  1. XOLAIR [Suspect]
     Indication: ASTHMA
     Dosage: 150 mg, UNK
     Route: 058
     Dates: start: 20060201
  2. XOLAIR [Suspect]
     Dosage: 150 mg, Q4W
     Route: 058
     Dates: start: 20060320
  3. XOLAIR [Suspect]
     Dosage: 150 mg, 1/Month
     Route: 058
     Dates: start: 20090706
  4. XOLAIR [Suspect]
     Dosage: 150 mg, 1/Month
     Route: 065
     Dates: start: 20060320
  5. XOLAIR [Suspect]
     Dosage: 150 mg, 1/Month
     Route: 065
     Dates: start: 20091026

REACTIONS (13)
  - Asthma [Recovering/Resolving]
  - Hypersensitivity [Unknown]
  - Dysphonia [Unknown]
  - Cough [Unknown]
  - Nasal congestion [Unknown]
  - Sputum discoloured [Unknown]
  - Bronchitis [Unknown]
  - Sinusitis [Unknown]
  - Peak expiratory flow rate decreased [Unknown]
  - Discomfort [Unknown]
  - Insomnia [Unknown]
  - Drug ineffective [Unknown]
  - Increased upper airway secretion [Unknown]
